FAERS Safety Report 14168875 (Version 2)
Quarter: 2018Q1

REPORT INFORMATION
  Report Type: Spontaneous
  Country: US (occurrence: US)
  Receive Date: 20171107
  Receipt Date: 20180223
  Transmission Date: 20180508
  Serious: Yes (Other)
  Sender: FDA-Public Use
  Company Number: US-MYLANLABS-2017M1069284

PATIENT
  Age: 93 Year
  Sex: Female

DRUGS (3)
  1. LATANOPROST. [Concomitant]
     Active Substance: LATANOPROST
     Indication: GLAUCOMA
     Route: 065
  2. TIMOLOL. [Suspect]
     Active Substance: TIMOLOL
     Indication: GLAUCOMA
     Dosage: 0.5%, TWICE A DAY, 0.5%, ERRONEOUSLY APPLYING MULTIPLE DROPS
     Route: 047
  3. PILOCARPINE. [Concomitant]
     Active Substance: PILOCARPINE
     Indication: GLAUCOMA
     Route: 065

REACTIONS (2)
  - Incorrect dose administered [Recovered/Resolved]
  - Hallucination, visual [Recovered/Resolved]
